FAERS Safety Report 5277613-0 (Version None)
Quarter: 2007Q1

REPORT INFORMATION
  Report Type: 
  Country: None (occurrence: None)
  Receive Date: 20070327
  Receipt Date: 20070312
  Transmission Date: 20070707
  Serious: Yes (Other)
  Sender: FDA-Public Use
  Company Number: US-SANOFI-SYNTHELABO-A03200702238

PATIENT
  Sex: Male

DRUGS (1)
  1. AMBIEN [Suspect]
     Dosage: UNK
     Route: 048

REACTIONS (2)
  - NIGHTMARE [None]
  - PHYSICAL ASSAULT [None]
